FAERS Safety Report 12680636 (Version 1)
Quarter: 2016Q3

REPORT INFORMATION
  Report Type: Spontaneous
  Country: US (occurrence: US)
  Receive Date: 20160824
  Receipt Date: 20160824
  Transmission Date: 20161109
  Serious: Yes (Other)
  Sender: FDA-Public Use
  Company Number: US-AMGEN-USASP2016106842

PATIENT
  Age: 67 Year
  Sex: Female

DRUGS (1)
  1. NEUPOGEN [Suspect]
     Active Substance: FILGRASTIM
     Indication: WHITE BLOOD CELL COUNT ABNORMAL
     Dosage: UNK UNK, UNK
     Route: 065
     Dates: start: 2000

REACTIONS (4)
  - Chest pain [Unknown]
  - Cyclic neutropenia [Unknown]
  - Pyrexia [Unknown]
  - Chills [Unknown]

NARRATIVE: CASE EVENT DATE: 2001
